FAERS Safety Report 9174599 (Version 2)
Quarter: 2013Q2

REPORT INFORMATION
  Report Type: Spontaneous
  Country: US (occurrence: None)
  Receive Date: 20130313
  Receipt Date: 20130401
  Transmission Date: 20140414
  Serious: Yes (Hospitalization)
  Sender: FDA-Public Use
  Company Number: 2013SGN00112

PATIENT
  Age: 72 Year
  Sex: Male
  Weight: 74.3 kg

DRUGS (1)
  1. BRENTUXIMAB VEDOTIN [Suspect]
     Indication: MESOTHELIOMA
     Dosage: 86 MG, Q21D, INTRAVENOUS?
     Route: 042
     Dates: start: 20130220, end: 20130220

REACTIONS (13)
  - Respiratory failure [None]
  - Hypercapnia [None]
  - No therapeutic response [None]
  - Chest pain [None]
  - Infusion related reaction [None]
  - Dyspnoea [None]
  - Flushing [None]
  - Neutrophil percentage increased [None]
  - Sinus tachycardia [None]
  - Myocardial infarction [None]
  - Pleural effusion [None]
  - Condition aggravated [None]
  - Respiratory distress [None]
